FAERS Safety Report 9198080 (Version 1)
Quarter: 2013Q1

REPORT INFORMATION
  Report Type: Spontaneous
  Country: HR (occurrence: HR)
  Receive Date: 20130329
  Receipt Date: 20130329
  Transmission Date: 20140127
  Serious: Yes (Life-Threatening, Hospitalization)
  Sender: FDA-Public Use
  Company Number: PHHY2013HR030083

PATIENT
  Sex: Male
  Weight: 80 kg

DRUGS (7)
  1. OXALIPLATIN [Suspect]
     Indication: CHEMOTHERAPY
     Route: 042
     Dates: start: 20130227, end: 20130227
  2. REGLAN [Concomitant]
     Indication: PREMEDICATION
     Route: 042
     Dates: start: 20130227, end: 20130227
  3. DEXAMETHASON [Concomitant]
     Indication: PREMEDICATION
     Route: 042
     Dates: start: 20130227, end: 20130227
  4. NORMABEL [Concomitant]
     Indication: PREMEDICATION
     Route: 042
     Dates: start: 20130227, end: 20130227
  5. KALCIJ FOLINAT PLIVA [Concomitant]
     Indication: CHEMOTHERAPY
     Route: 042
     Dates: start: 20130227, end: 20130227
  6. GLUCOSE [Concomitant]
     Indication: CHEMOTHERAPY
     Route: 042
     Dates: start: 20130227, end: 20130327
  7. RANITAL [Concomitant]
     Indication: PREMEDICATION
     Route: 042
     Dates: start: 20130227, end: 20130227

REACTIONS (9)
  - Urinary incontinence [Recovered/Resolved]
  - Somnolence [Recovered/Resolved]
  - Syncope [Recovered/Resolved]
  - Pruritus [Recovered/Resolved]
  - Blood pressure immeasurable [Recovered/Resolved]
  - Tachycardia [Recovered/Resolved]
  - Chills [Recovered/Resolved]
  - Anaphylactic reaction [Recovered/Resolved]
  - Erythema [Recovered/Resolved]
